FAERS Safety Report 19881239 (Version 1)
Quarter: 2021Q3

REPORT INFORMATION
  Report Type: Spontaneous
  Country: FR (occurrence: FR)
  Receive Date: 20210924
  Receipt Date: 20210924
  Transmission Date: 20211014
  Serious: Yes (Hospitalization, Other)
  Sender: FDA-Public Use
  Company Number: FR-009507513-2109FRA005458

PATIENT
  Age: 52 Year
  Sex: Female

DRUGS (18)
  1. ZAVICEFTA [Concomitant]
     Active Substance: AVIBACTAM SODIUM\CEFTAZIDIME
     Indication: STENOTROPHOMONAS INFECTION
     Dosage: 0.75 G/0.1875 G EVERY 24 HOURS; FORMULATION: POWDER FOR INFUSION
     Dates: start: 20210903, end: 20210908
  2. MIRTAZAPINE. [Concomitant]
     Active Substance: MIRTAZAPINE
     Dosage: 7.5 MILLIGRAM, IN THE MORNING
  3. NOXAFIL [Suspect]
     Active Substance: POSACONAZOLE
     Indication: ASPERGILLUS INFECTION
     Dosage: 300 MILLIGRAM IN THE MORNING AND IN THE EVENING
     Route: 048
     Dates: start: 20210902, end: 20210912
  4. CALCIPARINE [Concomitant]
     Active Substance: HEPARIN CALCIUM
     Dosage: 5000 IU IN THE MORNING AND IN THE EVENING; STRENGTH: 5000 IU/0.2 ML
     Dates: end: 20210907
  5. ALPRAZOLAM. [Concomitant]
     Active Substance: ALPRAZOLAM
     Dosage: 0.5 MILLIGRAM, IN THE MORNING, AT NOON, IN THE EVENING
  6. FERINJECT [Concomitant]
     Active Substance: FERRIC CARBOXYMALTOSE
     Dosage: 500 MILLIGRAM, ONCE
     Dates: start: 20210901, end: 20210901
  7. ARANESP [Concomitant]
     Active Substance: DARBEPOETIN ALFA
     Dosage: 1 SYRINGE, FREQUENCY UNKNOWN; STRENGTH: 60 MICROGRAM/0.3ML
     Dates: start: 20210902
  8. ADVAGRAF [Concomitant]
     Active Substance: TACROLIMUS
     Dosage: OVERDOSED AT 28.3 NANOGRAM PER MILLLIITER
     Dates: start: 20210906, end: 20210906
  9. AZACTAM [Concomitant]
     Active Substance: AZTREONAM
     Indication: STENOTROPHOMONAS INFECTION
     Dosage: 0.25G/8H AFTER LOADING DOSE OF 2G
     Dates: start: 20210903, end: 20210908
  10. RACECADOTRIL [Concomitant]
     Active Substance: RACECADOTRIL
     Dosage: 100 MILLIGRAM (1 CAPSULE), AT 07:00, 15:00 AND 21:00 IF NEEDED
     Dates: start: 20210903
  11. ACUPAN [Concomitant]
     Active Substance: NEFOPAM HYDROCHLORIDE
     Dosage: 20 MILLIGRAM (1 AMPOULE) 3 TIMES/DAY IF NEEDED
  12. ADVAGRAF [Concomitant]
     Active Substance: TACROLIMUS
     Indication: IMMUNOSUPPRESSANT DRUG THERAPY
     Dosage: DOSE ADAPTED TO PLASMA DOSAGES
  13. MINOCYCLINE [Concomitant]
     Active Substance: MINOCYCLINE HYDROCHLORIDE
     Indication: STENOTROPHOMONAS INFECTION
     Dosage: 1 CAPSULE AT 08:00 AND 20:00
     Dates: start: 20210829, end: 20210903
  14. PRIMPERAN [Concomitant]
     Active Substance: METOCLOPRAMIDE HYDROCHLORIDE
     Dosage: 5 MILLIGRAM AT 07:00, 15:00 AND 21:00 IF NEEDED
     Dates: start: 20210830
  15. CERTICAN [Concomitant]
     Active Substance: EVEROLIMUS
     Indication: IMMUNOSUPPRESSANT DRUG THERAPY
     Dosage: DOSE ADAPTED TO PLASMA DOSAGES
  16. CERTICAN [Concomitant]
     Active Substance: EVEROLIMUS
     Dosage: OVERDOSED AT 26.4 NANOGRAM PER MILLLIITER
     Dates: start: 20210906, end: 20210906
  17. LANSOPRAZOLE. [Concomitant]
     Active Substance: LANSOPRAZOLE
     Dosage: 30 MILLIGRAM (1 TABLET) IN THE EVENING
     Dates: end: 20210912
  18. BACTRIM [Concomitant]
     Active Substance: SULFAMETHOXAZOLE\TRIMETHOPRIM
     Indication: STENOTROPHOMONAS INFECTION
     Dosage: 1 TABLET AT 20:00
     Dates: start: 20210829, end: 20210903

REACTIONS (3)
  - Thrombocytopenia [Not Recovered/Not Resolved]
  - Rectal haemorrhage [Unknown]
  - Inappropriate schedule of product administration [Unknown]

NARRATIVE: CASE EVENT DATE: 202109
